FAERS Safety Report 25905965 (Version 1)
Quarter: 2025Q4

REPORT INFORMATION
  Report Type: Spontaneous
  Country: US (occurrence: None)
  Receive Date: 20251009
  Receipt Date: 20251009
  Transmission Date: 20260118
  Serious: Yes (Other)
  Sender: FDA-CTU
  Company Number: None

PATIENT
  Age: 62 Year
  Sex: Female

DRUGS (1)
  1. GLATIRAMER ACETATE [Suspect]
     Active Substance: GLATIRAMER ACETATE
     Indication: Multiple sclerosis
     Dosage: 40MG THREE TIMS A WEEK ?

REACTIONS (7)
  - Feeling hot [None]
  - Hyperhidrosis [None]
  - Erythema [None]
  - Nausea [None]
  - Vomiting [None]
  - Diarrhoea [None]
  - Headache [None]
